FAERS Safety Report 4714880-3 (Version None)
Quarter: 2005Q3

REPORT INFORMATION
  Report Type: 
  Country: None (occurrence: None)
  Receive Date: 20050712
  Receipt Date: 20050707
  Transmission Date: 20060218
  Serious: Yes (Death, Hospitalization)
  Sender: FDA-Public Use
  Company Number: SEWYE591215APR05

PATIENT
  Age: 21 Year
  Sex: Female

DRUGS (4)
  1. EFFEXOR [Suspect]
     Indication: DEPRESSION
     Dosage: PROBABLY ABOUT 15 G (ABOUT 200 CAPSULES), ORAL
     Route: 048
     Dates: start: 20040907, end: 20040907
  2. PULMICORT [Concomitant]
  3. VENTOLIN [Concomitant]
  4. NASONEX [Concomitant]

REACTIONS (6)
  - ARRHYTHMIA [None]
  - CARDIAC ARREST [None]
  - COMPLETED SUICIDE [None]
  - INTENTIONAL MISUSE [None]
  - LOSS OF CONSCIOUSNESS [None]
  - OVERDOSE [None]
